FAERS Safety Report 5419159-2 (Version None)
Quarter: 2007Q3

REPORT INFORMATION
  Report Type: 
  Country: None (occurrence: None)
  Receive Date: 20070816
  Receipt Date: 20070816
  Transmission Date: 20080115
  Serious: Yes (Other)
  Sender: FDA-Public Use
  Company Number: None

PATIENT
  Age: 55 Year
  Sex: Male
  Weight: 77.1115 kg

DRUGS (2)
  1. LYRICA [Suspect]
     Indication: CERVICAL ROOT PAIN
     Dosage: 100 MG. 4/DAY PO
     Route: 048
     Dates: start: 20070205, end: 20070207
  2. LYRICA [Suspect]
     Indication: DYSTONIA
     Dosage: 100 MG. 4/DAY PO
     Route: 048
     Dates: start: 20070205, end: 20070207

REACTIONS (2)
  - DRUG INEFFECTIVE [None]
  - PHARMACEUTICAL PRODUCT COMPLAINT [None]
